FAERS Safety Report 4866932-5 (Version None)
Quarter: 2005Q4

REPORT INFORMATION
  Report Type: 
  Country: None (occurrence: None)
  Receive Date: 20051222
  Receipt Date: 20051209
  Transmission Date: 20060501
  Serious: Yes (Life-Threatening, Other)
  Sender: FDA-Public Use
  Company Number: 2005158195

PATIENT
  Age: 59 Year
  Sex: Female
  Weight: 48.6 kg

DRUGS (6)
  1. IRINOTECAN HYDROCHLORIDE SOLUTION, STERILE [Suspect]
     Indication: NON-SMALL CELL LUNG CANCER
     Dosage: 60 MG/M2, INTRAVENOUS
     Route: 042
     Dates: start: 20050104, end: 20050104
  2. CISPLATIN [Suspect]
     Indication: NON-SMALL CELL LUNG CANCER
     Dosage: 80 MG/M2, INTRAVENOUS
     Route: 042
     Dates: start: 20050104, end: 20050104
  3. SODIUM BICAROBONATE (SODIUM BICARBONATE) [Concomitant]
  4. URSODIOL [Concomitant]
  5. MAGNESIUM OXIDE       (MAGNESIUM OXDE) [Concomitant]
  6. PRIMPERAN TAB [Concomitant]

REACTIONS (4)
  - DEPRESSED LEVEL OF CONSCIOUSNESS [None]
  - GRAND MAL CONVULSION [None]
  - INAPPROPRIATE ANTIDIURETIC HORMONE SECRETION [None]
  - VOMITING [None]
